FAERS Safety Report 7573269-2 (Version None)
Quarter: 2011Q2

REPORT INFORMATION
  Report Type: 
  Country: None (occurrence: None)
  Receive Date: 20110627
  Receipt Date: 20110613
  Transmission Date: 20111010
  Serious: Yes (Other)
  Sender: FDA-Public Use
  Company Number: PHHY2010JP80023

PATIENT
  Age: 78 Year
  Sex: Female
  Weight: 43 kg

DRUGS (9)
  1. THALIDOMIDE [Concomitant]
     Indication: MULTIPLE MYELOMA
     Dosage: 100 MG, UNK
     Route: 048
     Dates: start: 20091112
  2. DOGMATYL [Concomitant]
     Dosage: 150 MG, UNK
     Route: 048
     Dates: start: 20091112
  3. EXJADE [Suspect]
     Indication: MULTIPLE MYELOMA
     Dosage: 875 MG, DAILY
     Route: 048
     Dates: start: 20091112, end: 20100715
  4. ALOSENN [Concomitant]
     Indication: CONSTIPATION
     Dosage: 1 G, UNK
     Route: 048
     Dates: start: 20091112
  5. BONALON [Concomitant]
     Indication: OSTEOPOROSIS
     Dosage: 5 MG, UNK
     Dates: start: 20091112
  6. GASMOTIN [Concomitant]
     Indication: GASTRITIS
     Dosage: 15 MG, UNK
     Route: 048
     Dates: start: 20100216
  7. RED CELLS MAP [Concomitant]
     Dosage: 2 UNITS PER WEEK
  8. MAGNESIUM SULFATE [Concomitant]
     Dosage: 1500 MG, UNK
     Route: 048
     Dates: start: 20091112
  9. PURSENNID [Concomitant]
     Indication: CONSTIPATION
     Dosage: 36 MG, UNK
     Route: 048
     Dates: start: 20091112

REACTIONS (4)
  - RENAL IMPAIRMENT [None]
  - MULTIPLE MYELOMA [None]
  - DEHYDRATION [None]
  - GASTRITIS [None]
